FAERS Safety Report 20378909 (Version 2)
Quarter: 2022Q1

REPORT INFORMATION
  Report Type: Spontaneous
  Country: US (occurrence: US)
  Receive Date: 20220126
  Receipt Date: 20220201
  Transmission Date: 20220424
  Serious: Yes (Other)
  Sender: FDA-Public Use
  Company Number: US-PFIZER INC-202101837116

PATIENT
  Sex: Female

DRUGS (6)
  1. TOZINAMERAN [Interacting]
     Active Substance: TOZINAMERAN
     Indication: COVID-19 immunisation
     Dosage: DOSE 1, SINGLE
     Route: 030
     Dates: start: 20210331, end: 20210331
  2. TOZINAMERAN [Interacting]
     Active Substance: TOZINAMERAN
     Dosage: DOSE 2, SINGLE
     Route: 030
     Dates: start: 20210421, end: 20210421
  3. TOZINAMERAN [Interacting]
     Active Substance: TOZINAMERAN
     Dosage: DOSE 3 (BOOSTER), SINGLE
     Route: 030
     Dates: start: 20210922, end: 20210922
  4. RITUXIMAB [Interacting]
     Active Substance: RITUXIMAB
     Indication: Thrombocytopenia
     Dosage: UNK (LAST OF THESE INFUSIONS)
     Dates: start: 20210322
  5. RITUXIMAB [Interacting]
     Active Substance: RITUXIMAB
     Dosage: UNK (4 WEEKLY INFUSIONS)
     Dates: start: 202103
  6. INFLUENZA VIRUS VACCINE [Concomitant]
     Active Substance: INFLUENZA VIRUS VACCINE
     Dosage: UNK
     Dates: start: 2021, end: 2021

REACTIONS (3)
  - Immunodeficiency [Unknown]
  - SARS-CoV-2 antibody test negative [Unknown]
  - Drug interaction [Unknown]

NARRATIVE: CASE EVENT DATE: 20210301
